FAERS Safety Report 26204812 (Version 1)
Quarter: 2025Q4

REPORT INFORMATION
  Report Type: Spontaneous
  Country: US (occurrence: US)
  Receive Date: 20251227
  Receipt Date: 20251227
  Transmission Date: 20260117
  Serious: Yes (Hospitalization, Other)
  Sender: AMGEN
  Company Number: US-TANABE_PHARMA-MTPC2025-0022156

PATIENT
  Age: 61 Year
  Sex: Female

DRUGS (8)
  1. INEBILIZUMAB [Suspect]
     Active Substance: INEBILIZUMAB
     Indication: Neuromyelitis optica spectrum disorder
     Dosage: 300 MILLIGRAM, Q2WK
     Route: 040
  2. INEBILIZUMAB [Suspect]
     Active Substance: INEBILIZUMAB
     Dosage: 300 MILLIGRAM, Q6MO
     Route: 040
  3. DAPSONE [Suspect]
     Active Substance: DAPSONE
     Indication: Neuromyelitis optica spectrum disorder
     Dosage: UNK
     Route: 065
  4. SULFAMETHOXAZOLE AND TRIMETHOPRIM [Suspect]
     Active Substance: SULFAMETHOXAZOLE\TRIMETHOPRIM
     Indication: Neuromyelitis optica spectrum disorder
     Dosage: UNK
     Route: 065
  5. CARBAMAZEPINE [Suspect]
     Active Substance: CARBAMAZEPINE
     Indication: Neuromyelitis optica spectrum disorder
     Dosage: UNK
     Route: 065
  6. PREDNISONE [Concomitant]
     Active Substance: PREDNISONE
     Indication: Neuromyelitis optica spectrum disorder
     Dosage: 60 MILLIGRAM, QD
     Route: 048
  7. LACOSAMIDE [Concomitant]
     Active Substance: LACOSAMIDE
     Indication: Neuromyelitis optica spectrum disorder
     Dosage: 100 MILLIGRAM, BID
     Route: 065
  8. METHYLPREDNISOLONE [Concomitant]
     Active Substance: METHYLPREDNISOLONE
     Indication: Neuromyelitis optica spectrum disorder
     Dosage: 1 GRAM
     Route: 040

REACTIONS (5)
  - Hypogammaglobulinaemia [Recovered/Resolved]
  - Tooth abscess [Recovered/Resolved]
  - Urosepsis [Recovered/Resolved]
  - Leukopenia [Recovered/Resolved]
  - Anaemia [Recovered/Resolved]
